FAERS Safety Report 7218323-X (Version None)
Quarter: 2011Q1

REPORT INFORMATION
  Report Type: 
  Country: None (occurrence: None)
  Receive Date: 20110110
  Receipt Date: 20100317
  Transmission Date: 20110831
  Serious: No
  Sender: FDA-Public Use
  Company Number: US-BRISTOL-MYERS SQUIBB COMPANY-15025109

PATIENT
  Sex: Female

DRUGS (1)
  1. TRAZODONE HCL [Suspect]
     Dosage: DOSE STARTED AT 5MG FOR ONE WEEK THEN TITRATED TO 10MG FOR THREE WEEKS

REACTIONS (1)
  - PARAESTHESIA [None]
